FAERS Safety Report 17638809 (Version 2)
Quarter: 2020Q3

REPORT INFORMATION
  Report Type: Spontaneous
  Country: US (occurrence: US)
  Receive Date: 20200407
  Receipt Date: 20200702
  Transmission Date: 20201102
  Serious: No
  Sender: FDA-Public Use
  Company Number: US-SA-2020SA086120

PATIENT

DRUGS (1)
  1. DUPIXENT [Suspect]
     Active Substance: DUPILUMAB
     Indication: ASTHMA
     Dosage: 300 MG
     Route: 058
     Dates: start: 20200120

REACTIONS (4)
  - Product dose omission issue [Unknown]
  - Injection site erythema [Unknown]
  - Incorrect dose administered [Unknown]
  - Asthma [Unknown]

NARRATIVE: CASE EVENT DATE: 20200528
